FAERS Safety Report 5047893-5 (Version None)
Quarter: 2006Q3

REPORT INFORMATION
  Report Type: 
  Country: None (occurrence: None)
  Receive Date: 20060711
  Receipt Date: 20060519
  Transmission Date: 20061208
  Serious: Yes (Congenital Anomaly)
  Sender: FDA-Public Use
  Company Number: US-GLAXOSMITHKLINE-A0606847A

PATIENT
  Sex: Male
  Weight: 3 kg

DRUGS (9)
  1. TRIZIVIR [Suspect]
     Indication: HIV INFECTION
     Dosage: 1500MG PER DAY
     Route: 048
     Dates: start: 20050330, end: 20050525
  2. COMBIVIR [Suspect]
     Indication: HIV INFECTION
     Dosage: 900MG PER DAY
     Route: 048
     Dates: start: 20050603, end: 20051227
  3. RETROVIR [Suspect]
     Indication: HIV INFECTION
     Dosage: 600MG PER DAY
     Route: 042
     Dates: start: 20051103, end: 20051103
  4. NELFINAVIR [Suspect]
     Indication: HIV INFECTION
     Dosage: 2500MG PER DAY
     Route: 048
     Dates: start: 20050603, end: 20051227
  5. NORVIR [Suspect]
     Indication: HIV INFECTION
     Dosage: 100MG PER DAY
     Route: 048
     Dates: start: 20040316, end: 20050330
  6. KALETRA [Suspect]
     Indication: HIV INFECTION
     Dosage: 996MG PER DAY
     Route: 048
     Dates: start: 20050330, end: 20050525
  7. REYATAZ [Suspect]
     Indication: HIV INFECTION
     Dosage: 300MG PER DAY
     Route: 048
     Dates: start: 20040316, end: 20050330
  8. TRUVADA [Suspect]
     Indication: HIV INFECTION
     Dosage: 500MG PER DAY
     Route: 048
     Dates: start: 20040316, end: 20050330
  9. TRIMETHOPRIM + SULFAMETHOXAZOLE [Concomitant]

REACTIONS (6)
  - CONVULSION [None]
  - DEVELOPMENTAL DELAY [None]
  - DRUG EXPOSURE DURING PREGNANCY [None]
  - EYE MOVEMENT DISORDER [None]
  - HYPOTONIA [None]
  - TRISOMY 15 [None]
